FAERS Safety Report 23881820 (Version 1)
Quarter: 2024Q2

REPORT INFORMATION
  Report Type: Report from Study
  Country: US (occurrence: US)
  Receive Date: 20240521
  Receipt Date: 20240521
  Transmission Date: 20240716
  Serious: No
  Sender: FDA-Public Use
  Company Number: US-ALXN-202405GLO000817US

PATIENT
  Sex: Male

DRUGS (5)
  1. KANUMA [Suspect]
     Active Substance: SEBELIPASE ALFA
     Indication: Lysosomal acid lipase deficiency
     Dosage: 1 MILLIGRAM/KILOGRAM, BI-WEEKLY
     Route: 042
     Dates: start: 20160826
  2. KANUMA [Suspect]
     Active Substance: SEBELIPASE ALFA
     Dosage: 2 MILLIGRAM PER MILLILITRE, BI-WEEKLY
     Route: 065
     Dates: start: 20200828
  3. ROSUVASTATIN [Concomitant]
     Active Substance: ROSUVASTATIN
     Indication: Lysosomal acid lipase deficiency
     Dosage: 1 DOSAGE FORM, QD
     Route: 048
     Dates: start: 20231215
  4. LIDOCAINE [Concomitant]
     Active Substance: LIDOCAINE
     Indication: Product used for unknown indication
     Dosage: UNK
     Route: 061
     Dates: start: 20230606
  5. LIDOCAINE\PRILOCAINE [Concomitant]
     Active Substance: LIDOCAINE\PRILOCAINE
     Indication: Product used for unknown indication
     Dosage: 30 MINUTES BEFORE INFUSION
     Route: 061
     Dates: start: 20231003

REACTIONS (1)
  - Irritable bowel syndrome [Not Recovered/Not Resolved]
